FAERS Safety Report 12078415 (Version 2)
Quarter: 2016Q1

REPORT INFORMATION
  Report Type: Report from Study
  Country: US (occurrence: US)
  Receive Date: 20160216
  Receipt Date: 20160226
  Transmission Date: 20160526
  Serious: Yes (Other)
  Sender: FDA-Public Use
  Company Number: US-UCBSA-2016005266

PATIENT
  Sex: Male
  Weight: 103 kg

DRUGS (7)
  1. CLONAZEPAM. [Concomitant]
     Active Substance: CLONAZEPAM
     Indication: FEAR
     Dosage: 1 MG, AS NEEDED (PRN) (ON AND OFF)
     Route: 048
     Dates: start: 2007
  2. GABAPENTIN. [Concomitant]
     Active Substance: GABAPENTIN
     Indication: PRODUCT USED FOR UNKNOWN INDICATION
     Dosage: UNK
  3. KEPPRA [Suspect]
     Active Substance: LEVETIRACETAM
     Indication: SEIZURE
     Dosage: UNK
     Route: 048
     Dates: start: 2013
  4. KEPPRA [Suspect]
     Active Substance: LEVETIRACETAM
     Dosage: DOSE INCREASED
     Dates: end: 201506
  5. LACOSAMIDE [Suspect]
     Active Substance: LACOSAMIDE
     Indication: SEIZURE
     Dosage: 100 MG, 2X/DAY (BID)
     Route: 048
     Dates: start: 201507
  6. CLONAZEPAM. [Concomitant]
     Active Substance: CLONAZEPAM
     Indication: ANXIETY
  7. LYRICA [Concomitant]
     Active Substance: PREGABALIN
     Indication: PRODUCT USED FOR UNKNOWN INDICATION
     Dosage: UNK

REACTIONS (6)
  - Wrong technique in product usage process [Unknown]
  - Seizure [Not Recovered/Not Resolved]
  - Depression [Recovering/Resolving]
  - Generalised tonic-clonic seizure [Not Recovered/Not Resolved]
  - Amnesia [Not Recovered/Not Resolved]
  - Drug ineffective [Unknown]
